FAERS Safety Report 5383834-9 (Version None)
Quarter: 2007Q3

REPORT INFORMATION
  Report Type: 
  Country: None (occurrence: None)
  Receive Date: 20070706
  Receipt Date: 20070629
  Transmission Date: 20080115
  Serious: Yes (Other)
  Sender: FDA-Public Use
  Company Number: 2007S1000171

PATIENT
  Age: 2 Year
  Sex: Male

DRUGS (1)
  1. OLUX [Suspect]
     Indication: SKIN DISORDER
     Dosage: 0.5 PCT;

REACTIONS (2)
  - ACCIDENTAL EXPOSURE [None]
  - VOMITING [None]
